FAERS Safety Report 19252085 (Version 1)
Quarter: 2021Q2

REPORT INFORMATION
  Report Type: Spontaneous
  Country: US (occurrence: US)
  Receive Date: 20210513
  Receipt Date: 20210513
  Transmission Date: 20210717
  Serious: Yes (Other)
  Sender: FDA-Public Use
  Company Number: US-BAYER-2021-140304

PATIENT
  Age: 24 Year
  Sex: Female

DRUGS (1)
  1. KYLEENA [Suspect]
     Active Substance: LEVONORGESTREL
     Indication: CONTRACEPTION
     Dosage: 17.5  ?G PER DAY CON
     Route: 015
     Dates: start: 20200911, end: 20200914

REACTIONS (3)
  - Procedural pain [None]
  - Device expulsion [Recovered/Resolved]
  - Post procedural haemorrhage [None]

NARRATIVE: CASE EVENT DATE: 20200914
